FAERS Safety Report 7655455-6 (Version None)
Quarter: 2011Q3

REPORT INFORMATION
  Report Type: 
  Country: None (occurrence: None)
  Receive Date: 20110804
  Receipt Date: 20110801
  Transmission Date: 20111222
  Serious: No
  Sender: FDA-Public Use
  Company Number: US-PFIZER INC-2011174916

PATIENT
  Sex: Female
  Weight: 53 kg

DRUGS (1)
  1. DEPO-PROVERA [Suspect]
     Indication: CONTRACEPTION
     Dosage: 150 MG, EVERY THIRTEEN WEEKS
     Dates: start: 19970101

REACTIONS (1)
  - CHLOASMA [None]
